FAERS Safety Report 4567177-9 (Version None)
Quarter: 2005Q1

REPORT INFORMATION
  Report Type: 
  Country: None (occurrence: None)
  Receive Date: 20050201
  Receipt Date: 20050125
  Transmission Date: 20050727
  Serious: Yes (Other)
  Sender: FDA-Public Use
  Company Number: US-GLAXOSMITHKLINE-A0542195A

PATIENT
  Sex: Female

DRUGS (9)
  1. ALBENZA [Suspect]
     Indication: ILL-DEFINED DISORDER
     Dosage: 400MG WEEKLY
     Route: 048
     Dates: start: 20040901, end: 20041001
  2. VICODIN [Concomitant]
  3. EFFEXOR [Concomitant]
  4. AMBIEN [Concomitant]
  5. CAPTOPRIL [Concomitant]
  6. INDERAL [Concomitant]
  7. SYNTHROID [Concomitant]
  8. UNKNOWN ANTIBIOTIC [Concomitant]
  9. EVOXAC [Concomitant]

REACTIONS (6)
  - ABDOMINAL PAIN UPPER [None]
  - DEPRESSION [None]
  - ENERGY INCREASED [None]
  - GASTROENTERITIS VIRAL [None]
  - INSOMNIA [None]
  - VOMITING [None]
